FAERS Safety Report 10715133 (Version 2)
Quarter: 2015Q1

REPORT INFORMATION
  Report Type: Report from Study
  Country: HU (occurrence: HU)
  Receive Date: 20150115
  Receipt Date: 20150203
  Transmission Date: 20150721
  Serious: Yes (Hospitalization)
  Sender: FDA-Public Use
  Company Number: HU-AMGEN-HUNCT2015001671

PATIENT
  Age: 80 Year
  Sex: Female

DRUGS (15)
  1. VITAMIN D3 [Concomitant]
     Active Substance: CHOLECALCIFEROL
     Indication: OSTEOPOROSIS POSTMENOPAUSAL
  2. OLICARD [Concomitant]
     Dosage: 40 MG, QD
  3. BRINALDIX [Concomitant]
     Dosage: 10 MG, QOD
  4. AMLODIPINE [Concomitant]
     Active Substance: AMLODIPINE BESYLATE
     Dosage: 2.5 MG, QD
  5. BISOPROLOL [Concomitant]
     Active Substance: BISOPROLOL
     Dosage: 5 MG, QD
  6. XANAX [Concomitant]
     Active Substance: ALPRAZOLAM
     Dosage: 0.5 MG, QD
  7. ACECLOFENAC [Concomitant]
     Active Substance: ACECLOFENAC
     Indication: MUSCULOSKELETAL DISCOMFORT
  8. ACETYLSALICYLIC ACID [Concomitant]
     Active Substance: ASPIRIN
  9. THROMBEXX [Concomitant]
     Dosage: 75 MG, QD
  10. AFLAMIN                            /00003801/ [Concomitant]
     Indication: MUSCULOSKELETAL DISCOMFORT
  11. DENOSUMAB [Suspect]
     Active Substance: DENOSUMAB
     Indication: OSTEOPOROSIS POSTMENOPAUSAL
     Dosage: 60 MG, Q6MO
     Route: 058
     Dates: start: 20080111
  12. GERODORM [Concomitant]
     Dosage: 1 TABLET, QD
  13. MEZITAN [Concomitant]
     Dosage: 35 MG, BID
  14. VEZURAN [Concomitant]
     Dosage: 30 MG HALF TABLET QAM AND 1 TABLET QD
  15. VITAMIN E                          /00110501/ [Concomitant]

REACTIONS (3)
  - Diverticulum [Unknown]
  - Gastrointestinal haemorrhage [Recovered/Resolved]
  - Urinary tract infection [Unknown]

NARRATIVE: CASE EVENT DATE: 20141203
